FAERS Safety Report 25926088 (Version 1)
Quarter: 2025Q4

REPORT INFORMATION
  Report Type: Spontaneous
  Country: US (occurrence: US)
  Receive Date: 20251015
  Receipt Date: 20251015
  Transmission Date: 20260117
  Serious: No
  Sender: LUNDBECK
  Company Number: US-LUNDBECK-DKLU4019627

PATIENT
  Age: 47 Year
  Sex: Female
  Weight: 77.111 kg

DRUGS (3)
  1. VYEPTI [Suspect]
     Active Substance: EPTINEZUMAB-JJMR
     Indication: Migraine without aura
     Dosage: 100 MILLIGRAM
     Route: 041
     Dates: start: 20250619
  2. ONDANSETRON HYDROCHLORIDE [Concomitant]
     Active Substance: ONDANSETRON HYDROCHLORIDE
     Indication: Product used for unknown indication
     Dosage: STRENGTH 4 MILLIGRAM
     Route: 048
  3. RIZATRIPTAN BENZOATE [Concomitant]
     Active Substance: RIZATRIPTAN BENZOATE
     Indication: Product used for unknown indication
     Dosage: 1 TABLET AT ONSET OF MIGRAIN, REPEAT IN 2HR IF NEEDED
     Route: 048

REACTIONS (1)
  - Drug ineffective [Recovered/Resolved]
